FAERS Safety Report 12790268 (Version 1)
Quarter: 2016Q3

REPORT INFORMATION
  Report Type: Spontaneous
  Country: BG (occurrence: BG)
  Receive Date: 20160928
  Receipt Date: 20160928
  Transmission Date: 20161109
  Serious: Yes (Life-Threatening, Hospitalization)
  Sender: FDA-Public Use
  Company Number: BG-ASTRAZENECA-2016SF01067

PATIENT
  Age: 31642 Day
  Sex: Male
  Weight: 68 kg

DRUGS (8)
  1. ATORVASTATIN [Concomitant]
     Active Substance: ATORVASTATIN
  2. PANTOPRAZOLE [Concomitant]
     Active Substance: PANTOPRAZOLE SODIUM
  3. BETALOC ZOK [Suspect]
     Active Substance: METOPROLOL SUCCINATE
     Dosage: 75 MG DAILY ONE TABLET IN THE MORNING AND A HALF TABLET IN THE EVENING
     Route: 048
  4. BRILIQUE [Suspect]
     Active Substance: TICAGRELOR
     Indication: ANGINA UNSTABLE
     Route: 048
     Dates: start: 20160616
  5. TORASEMIDE [Concomitant]
     Active Substance: TORSEMIDE
  6. FINASTERIDE. [Concomitant]
     Active Substance: FINASTERIDE
  7. ACETYLSALICYLIC ACID [Concomitant]
     Active Substance: ASPIRIN
  8. ZOFENOPRIL [Concomitant]
     Active Substance: ZOFENOPRIL

REACTIONS (3)
  - Myocardial ischaemia [Unknown]
  - Acute myocardial infarction [Recovered/Resolved]
  - Coronary artery disease [Unknown]

NARRATIVE: CASE EVENT DATE: 20160728
